FAERS Safety Report 4753527-7 (Version None)
Quarter: 2005Q3

REPORT INFORMATION
  Report Type: 
  Country: None (occurrence: None)
  Receive Date: 20050824
  Receipt Date: 20050811
  Transmission Date: 20060218
  Serious: Yes (Hospitalization)
  Sender: FDA-Public Use
  Company Number: 2005115662

PATIENT
  Age: 53 Year
  Sex: Female

DRUGS (5)
  1. EPIRUBICIN [Suspect]
     Indication: BREAST CANCER
     Dosage: 130 MG, INTRAVENOUS
     Route: 042
     Dates: start: 20050810, end: 20050810
  2. ENDOXAN (CYCLOPHOSMPHAMIDE) [Suspect]
     Indication: BREAST CANCER
     Dosage: 700 MG, INTRAVENOUS
     Route: 042
     Dates: start: 20050810, end: 20050810
  3. ENDOXAN (CYCLOSPHOPHAMIDE) [Suspect]
     Indication: BREAST CANCER
     Dosage: 700 MG , INTRAVENOUS
     Route: 042
     Dates: start: 20050810, end: 20050810
  4. FLUOROURACIL [Suspect]
     Indication: BREAST CANCER
     Dosage: 750 MG , INTRAVENOUS
     Route: 042
     Dates: start: 20050810, end: 20050810
  5. DECADRON [Concomitant]

REACTIONS (2)
  - BLOOD PRESSURE DECREASED [None]
  - SHOCK [None]
